FAERS Safety Report 21079208 (Version 3)
Quarter: 2022Q3

REPORT INFORMATION
  Report Type: Report from Study
  Country: EG (occurrence: EG)
  Receive Date: 20220714
  Receipt Date: 20220913
  Transmission Date: 20221026
  Serious: Yes (Other)
  Sender: FDA-Public Use
  Company Number: EG-NOVOPROD-937321

PATIENT
  Sex: Female
  Weight: 110 kg

DRUGS (9)
  1. XULTOPHY 100/3.6 [Suspect]
     Active Substance: INSULIN DEGLUDEC\LIRAGLUTIDE
     Dosage: 16 IU
     Route: 058
  2. XULTOPHY 100/3.6 [Suspect]
     Active Substance: INSULIN DEGLUDEC\LIRAGLUTIDE
     Dosage: 20 IU, QD
     Route: 058
  3. XULTOPHY 100/3.6 [Suspect]
     Active Substance: INSULIN DEGLUDEC\LIRAGLUTIDE
     Indication: Diabetes mellitus
     Dosage: 20 IU, QD
     Route: 058
  4. NOVORAPID [Concomitant]
     Active Substance: INSULIN ASPART
     Indication: Diabetes mellitus
     Dosage: 22 IU, TID (BEFORE EACH MEAL )
  5. TRITACE MAX [Concomitant]
     Indication: Hypertension
     Dosage: 1 TAB/DAY
  6. AMLOGEN [Concomitant]
     Indication: Hypertension
     Dosage: 1 TAB/DAY
  7. ACTAMONE [Concomitant]
     Indication: Depression
     Dosage: 1 TAB/DAY
  8. ABILIFY DISCMELT [Concomitant]
     Active Substance: ARIPIPRAZOLE
     Indication: Depression
     Dosage: 1 TAB/DAY
  9. ANAFRANIL [Concomitant]
     Active Substance: CLOMIPRAMINE HYDROCHLORIDE
     Indication: Depression
     Dosage: 1 TAB/DAY

REACTIONS (3)
  - Hyperglycaemia [Unknown]
  - Device failure [Unknown]
  - Hyperglycaemia [Unknown]
